FAERS Safety Report 16122587 (Version 1)
Quarter: 2019Q1

REPORT INFORMATION
  Report Type: Spontaneous
  Country: GB (occurrence: GB)
  Receive Date: 20190327
  Receipt Date: 20190327
  Transmission Date: 20190418
  Serious: Yes (Other)
  Sender: FDA-Public Use
  Company Number: GB-ACCORD-115200

PATIENT
  Age: 2 Year
  Sex: Male

DRUGS (8)
  1. CETIRIZINE [Concomitant]
     Active Substance: CETIRIZINE HYDROCHLORIDE
  2. MONTELUKAST [Suspect]
     Active Substance: MONTELUKAST SODIUM
     Indication: ASTHMA
     Route: 048
     Dates: start: 20160201, end: 20180210
  3. ZEROBASE [Concomitant]
     Active Substance: MINERAL OIL\PARAFFIN
  4. FUCIDIN [Concomitant]
     Active Substance: FUSIDATE SODIUM
  5. CLENIL MODULITE [Concomitant]
     Active Substance: BECLOMETHASONE DIPROPIONATE
  6. DIPROSONE [Concomitant]
     Active Substance: BETAMETHASONE DIPROPIONATE
  7. SALBUTAMOL [Concomitant]
     Active Substance: ALBUTEROL
  8. EMERADE [Concomitant]

REACTIONS (5)
  - Sleep terror [Recovering/Resolving]
  - Depressed mood [Unknown]
  - Social anxiety disorder [Recovering/Resolving]
  - Insomnia [Recovering/Resolving]
  - Aggression [Recovering/Resolving]

NARRATIVE: CASE EVENT DATE: 20160210
